FAERS Safety Report 5450810-7 (Version None)
Quarter: 2007Q3

REPORT INFORMATION
  Report Type: 
  Country: None (occurrence: None)
  Receive Date: 20070803
  Receipt Date: 20060727
  Transmission Date: 20080115
  Serious: Yes (Other)
  Sender: FDA-Public Use
  Company Number: US-JNJFOC-20060800041

PATIENT
  Sex: Male

DRUGS (1)
  1. TYLENOL [Suspect]
     Indication: DRUG USE FOR UNKNOWN INDICATION
     Dosage: 50000MG, 1 IN 1 TOTAL, ORAL
     Route: 048
     Dates: start: 20060726, end: 20060726

REACTIONS (2)
  - OVERDOSE [None]
  - VOMITING [None]
